FAERS Safety Report 23217003 (Version 2)
Quarter: 2023Q4

REPORT INFORMATION
  Report Type: Spontaneous
  Country: US (occurrence: US)
  Receive Date: 20231122
  Receipt Date: 20231213
  Transmission Date: 20240110
  Serious: Yes (Other)
  Sender: FDA-Public Use
  Company Number: US-BRISTOL-MYERS SQUIBB COMPANY-2023-165632

PATIENT
  Age: 39 Year
  Sex: Female

DRUGS (2)
  1. LENALIDOMIDE [Suspect]
     Active Substance: LENALIDOMIDE
     Indication: Product used for unknown indication
     Dosage: TAKE 1 CAPSULE DAILY X 10 DAYS
     Route: 048
     Dates: start: 20231103
  2. LENALIDOMIDE [Suspect]
     Active Substance: LENALIDOMIDE
     Dosage: LENALIDOMIDE 10 MG, TAKE 2 CAPSULES DAILY FOR 10 DAYS

REACTIONS (2)
  - Rash [Recovering/Resolving]
  - Off label use [Unknown]
